FAERS Safety Report 10362610 (Version 1)
Quarter: 2014Q1

REPORT INFORMATION
  Report Type: Spontaneous
  Country: US (occurrence: None)
  Receive Date: 20140306
  Receipt Date: 20140306
  Transmission Date: 20141002
  Serious: Yes (Hospitalization)
  Sender: FDA-Public Use
  Company Number: 163-21880-13021272

PATIENT
  Age: 73 Year
  Sex: Female

DRUGS (11)
  1. HYDRALAZINE HCL (HYDRALAZINE HYDROCHLORIDE) (UNKNOWN) [Concomitant]
  2. IMDUR ER (ISOSORBIDE MONONITRATE) (TABLETS) [Concomitant]
  3. JANUVIA (SITAGLIPTIN PHOSPHATE) (TABLETS) [Concomitant]
  4. LEVEMIR FLEXPEN (INSULIN DETEMIR) (UNKNOWN) [Concomitant]
  5. PREDNISONE (PREDNISONE) (TABLETS) [Concomitant]
  6. REVLIMID (LENALIDOMIDE) (5 MILLIGRAM, CAPSULES) [Suspect]
     Indication: MYELODYSPLASTIC SYNDROME
     Dosage: 5, 1 IN 1 D, PO
     Route: 048
     Dates: start: 20121215
  7. ADVAIR DISKUS (SERETIDE MITE) (UNKNOWN) [Concomitant]
  8. BYSTOLIC (NEBIVOLOL HYDROCHLORIDE) (TABLETS) [Concomitant]
  9. CELEXA (CITALOPRAM HYDROBROMIDE) (TABLETS) [Concomitant]
  10. CLONIDINE HCL (CLONIDINE HYDROCHLORIDE) (UNKNOWN) [Concomitant]
  11. FENOFIBRATE (FENOFIBRATE) (UNKNOWN) [Concomitant]

REACTIONS (1)
  - Cardiac failure congestive [None]
